APPROVED DRUG PRODUCT: DESLORATADINE
Active Ingredient: DESLORATADINE
Strength: 5MG
Dosage Form/Route: TABLET;ORAL
Application: A078359 | Product #001
Applicant: SUN PHARMACEUTICAL INDUSTRIES LTD
Approved: Nov 16, 2010 | RLD: No | RS: No | Type: DISCN